FAERS Safety Report 18677339 (Version 16)
Quarter: 2023Q1

REPORT INFORMATION
  Report Type: Report from Study
  Country: CN (occurrence: None)
  Receive Date: 20201229
  Receipt Date: 20230316
  Transmission Date: 20230417
  Serious: Yes (Death, Hospitalization)
  Sender: FDA-Public Use
  Company Number: CN-ROCHE-2740327

PATIENT
  Age: 72 Year
  Sex: Male
  Weight: 65 kg

DRUGS (80)
  1. PLACEBO [Suspect]
     Active Substance: UNSPECIFIED INGREDIENT
     Indication: Non-small cell lung cancer stage IV
     Dosage: THE START DATE OF MOST RECENT DOSE OF BLINDED ATEZOLIZUMAB PRIOR TO SAE (SERIOUS ADVERSE EVENT) ONSE
     Route: 042
     Dates: start: 20201110
  2. BEVACIZUMAB [Suspect]
     Active Substance: BEVACIZUMAB
     Indication: Non-small cell lung cancer stage IV
     Dosage: THE START DATE OF MOST RECENT DOSE OF BEVACIZUMAB (937.5 MG) PRIOR TO SAE (SERIOUS ADVERSE EVENT) ON
     Route: 042
     Dates: start: 20201110
  3. CARBOPLATIN [Suspect]
     Active Substance: CARBOPLATIN
     Indication: Non-small cell lung cancer stage IV
     Dosage: DOSE: AUC OF 6 MG/ML/MIN?THE START DATE OF MOST RECENT DOSE OF CARBOPATIN (500 MG) PRIOR TO SAE (SER
     Route: 042
     Dates: start: 20201110
  4. PEMETREXED [Suspect]
     Active Substance: PEMETREXED
     Indication: Non-small cell lung cancer stage IV
     Dosage: THE START DATE OF MOST RECENT DOSE OF PEMETREXED (850 MG) PRIOR TO SAE (SERIOUS ADVERSE EVENT) ONSET
     Route: 042
     Dates: start: 20201110
  5. TERBUTALINE SULFATE [Concomitant]
     Active Substance: TERBUTALINE SULFATE
     Indication: Productive cough
     Dates: start: 20201212, end: 20201213
  6. DOMPERIDONE [Concomitant]
     Active Substance: DOMPERIDONE
     Indication: Hiccups
     Dates: start: 20201202, end: 20201202
  7. DOMPERIDONE [Concomitant]
     Active Substance: DOMPERIDONE
     Dates: start: 20201110, end: 20201110
  8. DOMPERIDONE [Concomitant]
     Active Substance: DOMPERIDONE
     Dates: start: 20201217, end: 20201221
  9. LANSOPRAZOLE [Concomitant]
     Active Substance: LANSOPRAZOLE
     Indication: Gastrointestinal disorder prophylaxis
     Dates: start: 20201201, end: 20201203
  10. LANSOPRAZOLE [Concomitant]
     Active Substance: LANSOPRAZOLE
     Dates: start: 20201214, end: 20201223
  11. LANSOPRAZOLE [Concomitant]
     Active Substance: LANSOPRAZOLE
     Dates: start: 20201109, end: 20201110
  12. PALONOSETRON HYDROCHLORIDE [Concomitant]
     Active Substance: PALONOSETRON HYDROCHLORIDE
     Indication: Vomiting
     Dates: start: 20201202, end: 20201203
  13. PALONOSETRON HYDROCHLORIDE [Concomitant]
     Active Substance: PALONOSETRON HYDROCHLORIDE
     Dates: start: 20201110, end: 20201110
  14. DEXAMETHASONE ACETATE [Concomitant]
     Active Substance: DEXAMETHASONE ACETATE
     Indication: Anaphylactic reaction
     Route: 048
     Dates: start: 20201201, end: 20201204
  15. DEXAMETHASONE ACETATE [Concomitant]
     Active Substance: DEXAMETHASONE ACETATE
     Route: 048
     Dates: start: 20201201, end: 20201203
  16. DEXAMETHASONE ACETATE [Concomitant]
     Active Substance: DEXAMETHASONE ACETATE
     Route: 048
     Dates: start: 20201109, end: 20201110
  17. DEXAMETHASONE ACETATE [Concomitant]
     Active Substance: DEXAMETHASONE ACETATE
     Route: 048
     Dates: start: 20201109, end: 20201111
  18. METOCLOPRAMIDE HYDROCLORIDE [Concomitant]
     Indication: Hiccups
     Dates: start: 20201202, end: 20201202
  19. PROMETHAZINE HYDROCHLORIDE [Concomitant]
     Active Substance: PROMETHAZINE HYDROCHLORIDE
     Indication: Anaphylactic reaction
     Dates: start: 20201210, end: 20201210
  20. CEFOPERAZONE SODIUM\SULBACTAM SODIUM [Concomitant]
     Active Substance: CEFOPERAZONE SODIUM\SULBACTAM SODIUM
     Indication: Infection
     Dates: start: 20201210, end: 20201213
  21. AMIKACIN SULFATE [Concomitant]
     Active Substance: AMIKACIN SULFATE
     Indication: Infection
     Dates: start: 20201210, end: 20201211
  22. PANTOPRAZOLE [Concomitant]
     Active Substance: PANTOPRAZOLE
     Dosage: PROTECT GASTRIC MUCOSA
     Dates: start: 20201210, end: 20201213
  23. BUDESONIDE [Concomitant]
     Active Substance: BUDESONIDE
     Indication: Productive cough
     Dosage: INHALANT
     Route: 048
     Dates: start: 20201212, end: 20201213
  24. SULPERAZONE [Concomitant]
     Active Substance: CEFOPERAZONE SODIUM\SULBACTAM SODIUM
     Indication: Infection
     Dates: start: 20201214, end: 20201215
  25. DEXAMETHASONE SODIUM PHOSPHATE [Concomitant]
     Active Substance: DEXAMETHASONE SODIUM PHOSPHATE
     Route: 042
     Dates: start: 20201214, end: 20201214
  26. DEXAMETHASONE SODIUM PHOSPHATE [Concomitant]
     Active Substance: DEXAMETHASONE SODIUM PHOSPHATE
     Dates: start: 20201215, end: 20201215
  27. DEXAMETHASONE SODIUM PHOSPHATE [Concomitant]
     Active Substance: DEXAMETHASONE SODIUM PHOSPHATE
     Dates: start: 20201218, end: 20201218
  28. DEXAMETHASONE SODIUM PHOSPHATE [Concomitant]
     Active Substance: DEXAMETHASONE SODIUM PHOSPHATE
     Dates: start: 20201217, end: 20201218
  29. DEXAMETHASONE SODIUM PHOSPHATE [Concomitant]
     Active Substance: DEXAMETHASONE SODIUM PHOSPHATE
     Dates: start: 20201222, end: 20201223
  30. FUROSEMIDE [Concomitant]
     Active Substance: FUROSEMIDE
     Indication: Polyuria
     Dates: start: 20201215, end: 20201215
  31. FUROSEMIDE [Concomitant]
     Active Substance: FUROSEMIDE
     Dates: start: 20201217, end: 20201217
  32. IMIPENEM AND CILASTATIN SODIUM [Concomitant]
     Active Substance: CILASTATIN SODIUM\IMIPENEM
     Indication: Infection
     Dates: start: 20201215, end: 20201223
  33. POTASSIUM CHLORIDE [Concomitant]
     Active Substance: POTASSIUM CHLORIDE
     Indication: Supplementation therapy
     Dates: start: 20201210, end: 20201211
  34. POTASSIUM CHLORIDE [Concomitant]
     Active Substance: POTASSIUM CHLORIDE
     Indication: Hypokalaemia
     Dates: start: 20201217, end: 20201217
  35. POTASSIUM CHLORIDE [Concomitant]
     Active Substance: POTASSIUM CHLORIDE
     Dates: start: 20201217, end: 20201219
  36. POTASSIUM CHLORIDE [Concomitant]
     Active Substance: POTASSIUM CHLORIDE
     Dates: start: 20201219, end: 20201221
  37. POTASSIUM CHLORIDE [Concomitant]
     Active Substance: POTASSIUM CHLORIDE
     Dates: start: 20201222, end: 20201222
  38. POTASSIUM CHLORIDE [Concomitant]
     Active Substance: POTASSIUM CHLORIDE
     Dates: start: 20201219, end: 20201223
  39. DEXTROSE\SODIUM CHLORIDE [Concomitant]
     Active Substance: DEXTROSE\SODIUM CHLORIDE
     Indication: Supplementation therapy
     Dates: start: 20201210, end: 20201213
  40. DEXTROSE\SODIUM CHLORIDE [Concomitant]
     Active Substance: DEXTROSE\SODIUM CHLORIDE
     Dates: start: 20201219, end: 20201223
  41. ASCORBIC ACID [Concomitant]
     Active Substance: ASCORBIC ACID
     Indication: Supplementation therapy
     Dates: start: 20201210, end: 20201213
  42. VITAMIN B6 [Concomitant]
     Active Substance: PYRIDOXINE HYDROCHLORIDE
     Indication: Supplementation therapy
     Dates: start: 20201210, end: 20201213
  43. CALCIUM GLUCONATE [Concomitant]
     Active Substance: CALCIUM GLUCONATE
     Indication: Supplementation therapy
     Dates: start: 20201214, end: 20201216
  44. SODIUM CHLORIDE [Concomitant]
     Active Substance: SODIUM CHLORIDE
     Dates: start: 20201223, end: 20201223
  45. FILGRASTIM [Concomitant]
     Active Substance: FILGRASTIM
     Indication: Leukopenia
     Dates: start: 20201126, end: 20201128
  46. FILGRASTIM [Concomitant]
     Active Substance: FILGRASTIM
     Indication: Neutrophil count decreased
     Dates: start: 20201203, end: 20201203
  47. FILGRASTIM [Concomitant]
     Active Substance: FILGRASTIM
     Dates: start: 20201210, end: 20201213
  48. FILGRASTIM [Concomitant]
     Active Substance: FILGRASTIM
     Dates: start: 20201214, end: 20201214
  49. FILGRASTIM [Concomitant]
     Active Substance: FILGRASTIM
     Dosage: PREVENT LEUKOPENIA AND DECREASE NEUTROPHILS COUNT
     Dates: start: 20201215, end: 20201215
  50. FILGRASTIM [Concomitant]
     Active Substance: FILGRASTIM
     Dates: start: 20201126, end: 20201126
  51. FILGRASTIM [Concomitant]
     Active Substance: FILGRASTIM
     Dates: start: 20201126, end: 20201128
  52. VITAMIN C [Concomitant]
     Active Substance: ASCORBIC ACID
     Indication: Hypokalaemia
     Dates: start: 20201210, end: 20201213
  53. VITAMIN C [Concomitant]
     Active Substance: ASCORBIC ACID
     Dates: start: 20201222, end: 20201222
  54. DEXTROSE [Concomitant]
     Active Substance: DEXTROSE
     Indication: Hypernatraemia
     Dates: start: 20201215, end: 20201217
  55. DEXTROSE [Concomitant]
     Active Substance: DEXTROSE
     Indication: Hyperchloraemia
     Dates: start: 20201217, end: 20201217
  56. DEXTROSE [Concomitant]
     Active Substance: DEXTROSE
     Dates: start: 20201222, end: 20201222
  57. LIDOCAINE HYDROCHLORIDE [Concomitant]
     Active Substance: LIDOCAINE HYDROCHLORIDE
     Indication: Oropharyngeal pain
     Dates: start: 20201215, end: 20201215
  58. LIDOCAINE HYDROCHLORIDE [Concomitant]
     Active Substance: LIDOCAINE HYDROCHLORIDE
     Dates: start: 20201218, end: 20201218
  59. LIDOCAINE HYDROCHLORIDE [Concomitant]
     Active Substance: LIDOCAINE HYDROCHLORIDE
     Dosage: ANTI-INFECTION
     Dates: start: 20201222, end: 20201223
  60. LIDOCAINE HYDROCHLORIDE [Concomitant]
     Active Substance: LIDOCAINE HYDROCHLORIDE
     Dates: start: 20201217, end: 20201218
  61. VANCOMYCIN HYDROCHLORIDE [Concomitant]
     Active Substance: VANCOMYCIN HYDROCHLORIDE
     Dates: start: 20201215, end: 20201223
  62. ALBUMIN HUMAN [Concomitant]
     Active Substance: ALBUMIN HUMAN
     Indication: Hypoalbuminaemia
     Dates: start: 20201216, end: 20201221
  63. ERYTHROPOIETIN [Concomitant]
     Active Substance: ERYTHROPOIETIN
     Indication: Anaemia
     Dates: start: 20201217, end: 20201217
  64. ERYTHROPOIETIN [Concomitant]
     Active Substance: ERYTHROPOIETIN
     Dates: start: 20201221, end: 20201221
  65. FERROUS SUCCINATE [Concomitant]
     Active Substance: FERROUS SUCCINATE
     Indication: Anaemia
     Dates: start: 20201217, end: 20201223
  66. SPIRONOLACTONE [Concomitant]
     Active Substance: SPIRONOLACTONE
     Indication: Polyuria
     Dates: start: 20201217, end: 20201221
  67. MEGESTROL ACETATE [Concomitant]
     Active Substance: MEGESTROL ACETATE
     Dates: start: 20201217, end: 20201223
  68. AMBROXOL HYDROCHLORIDE [Concomitant]
     Active Substance: AMBROXOL HYDROCHLORIDE
     Indication: Pneumonia
     Dates: start: 20201218, end: 20201223
  69. ACETYLCYSTEINE [Concomitant]
     Active Substance: ACETYLCYSTEINE
     Indication: Pneumonia
     Dates: start: 20201218, end: 20201223
  70. BUCINNAZINE HYDROCHLORIDE [Concomitant]
     Indication: Cholecystitis
     Dates: start: 20201223, end: 20201223
  71. MAGNESIUM SULFATE [Concomitant]
     Active Substance: MAGNESIUM SULFATE
     Indication: Cholecystitis
     Dates: start: 20201223, end: 20201223
  72. PHENOLPHTHALEIN [Concomitant]
     Active Substance: PHENOLPHTHALEIN
     Indication: Constipation
     Dates: start: 20201211, end: 20201211
  73. CAVIN [Concomitant]
     Dates: start: 20201214, end: 20201217
  74. CAVIN [Concomitant]
     Dates: start: 20201223, end: 20201223
  75. SODIUM BICARBONATE [Concomitant]
     Active Substance: SODIUM BICARBONATE
     Dates: start: 20201223, end: 20201223
  76. DOPAMINE HYDROCHLORIDE [Concomitant]
     Active Substance: DOPAMINE HYDROCHLORIDE
     Route: 042
     Dates: start: 20201223, end: 20201223
  77. NIKETHAMIDE [Concomitant]
     Active Substance: NIKETHAMIDE
     Route: 042
     Dates: start: 20201223, end: 20201223
  78. KANG FU XIN [Concomitant]
     Dates: start: 20201218, end: 20201223
  79. IPRATROPIUM BROMIDE [Concomitant]
     Active Substance: IPRATROPIUM BROMIDE
     Indication: Pneumonia
     Dates: start: 20201218, end: 20201223
  80. DEXTROSE\SODIUM CHLORIDE [Concomitant]
     Active Substance: DEXTROSE\SODIUM CHLORIDE
     Indication: Nutritional supplementation
     Dates: start: 20201219, end: 20201223

REACTIONS (4)
  - Cardiac arrest [Fatal]
  - Necrotic lymphadenopathy [Recovering/Resolving]
  - Febrile neutropenia [Recovered/Resolved]
  - Thrombocytopenia [Not Recovered/Not Resolved]

NARRATIVE: CASE EVENT DATE: 20201210
